FAERS Safety Report 6555195-0 (Version None)
Quarter: 2010Q1

REPORT INFORMATION
  Report Type: 
  Country: None (occurrence: None)
  Receive Date: 20100112
  Receipt Date: 20100112
  Transmission Date: 20100710
  Serious: Yes (Hospitalization)
  Sender: FDA-Public Use
  Company Number: 20090593

PATIENT
  Age: 40 Year
  Sex: Male

DRUGS (1)
  1. LIDOCAINE HCL INJECTION,  (0625-25) [Suspect]
     Indication: NERVE BLOCK
     Dosage: 10 ML OF 1%

REACTIONS (3)
  - DIZZINESS [None]
  - NAUSEA [None]
  - PELVIC HAEMATOMA [None]
